FAERS Safety Report 7464226-5 (Version None)
Quarter: 2011Q2

REPORT INFORMATION
  Report Type: 
  Country: None (occurrence: None)
  Receive Date: 20110506
  Receipt Date: 20110425
  Transmission Date: 20111010
  Serious: Yes (Other)
  Sender: FDA-Public Use
  Company Number: GB-WATSON-2011-06090

PATIENT
  Age: 79 Year
  Sex: Male

DRUGS (5)
  1. SULFASALAZINE [Suspect]
     Indication: CROHN'S DISEASE
     Dosage: UNK
  2. PREDNISOLONE [Suspect]
     Indication: CROHN'S DISEASE
     Dosage: UNK
  3. MESALAMINE [Suspect]
     Indication: CROHN'S DISEASE
  4. MERCAPTAMINE [Concomitant]
  5. AZATHIOPRINE [Concomitant]
     Indication: CROHN'S DISEASE

REACTIONS (1)
  - GASTROINTESTINAL DISORDER [None]
